FAERS Safety Report 18331627 (Version 5)
Quarter: 2020Q4

REPORT INFORMATION
  Report Type: Spontaneous
  Country: CA (occurrence: CA)
  Receive Date: 20200930
  Receipt Date: 20201111
  Transmission Date: 20210113
  Serious: Yes (Other)
  Sender: FDA-Public Use
  Company Number: CA-JNJFOC-20200943504

PATIENT
  Age: 39 Year
  Sex: Male
  Weight: 82 kg

DRUGS (19)
  1. INFLIXIMAB, RECOMBINANT [Suspect]
     Active Substance: INFLIXIMAB
     Indication: COLITIS ULCERATIVE
     Route: 042
  2. INFLIXIMAB [Suspect]
     Active Substance: INFLIXIMAB
     Indication: COLITIS ULCERATIVE
     Route: 042
  3. ENTYVIO [Suspect]
     Active Substance: VEDOLIZUMAB
     Route: 042
  4. ENTOCORT [Concomitant]
     Active Substance: BUDESONIDE
     Route: 065
  5. INFLIXIMAB, RECOMBINANT [Suspect]
     Active Substance: INFLIXIMAB
     Indication: CROHN^S DISEASE
  6. PREDNISONE. [Concomitant]
     Active Substance: PREDNISONE
     Route: 065
  7. VITAMIN D                          /00107901/ [Concomitant]
     Active Substance: ERGOCALCIFEROL
  8. URSODIOL. [Concomitant]
     Active Substance: URSODIOL
     Indication: CHOLANGITIS SCLEROSING
  9. ACETAMINOPHEN. [Concomitant]
     Active Substance: ACETAMINOPHEN
     Route: 065
  10. METOPROLOL. [Concomitant]
     Active Substance: METOPROLOL
     Route: 065
  11. CORTIMENT                          /00028601/ [Concomitant]
     Active Substance: HYDROCORTISONE
     Route: 065
  12. INFLIXIMAB [Suspect]
     Active Substance: INFLIXIMAB
     Indication: CROHN^S DISEASE
     Route: 042
  13. ENTYVIO [Suspect]
     Active Substance: VEDOLIZUMAB
     Indication: CROHN^S DISEASE
     Route: 042
  14. ENTYVIO [Suspect]
     Active Substance: VEDOLIZUMAB
     Route: 042
  15. PREDNISONE. [Concomitant]
     Active Substance: PREDNISONE
     Indication: PRODUCT USED FOR UNKNOWN INDICATION
     Route: 042
  16. MEZAVANT [Concomitant]
     Active Substance: MESALAMINE
  17. AZATHIOPRINE. [Concomitant]
     Active Substance: AZATHIOPRINE
     Route: 065
  18. FLAGYL [Concomitant]
     Active Substance: METRONIDAZOLE\METRONIDAZOLE HYDROCHLORIDE
     Route: 065
  19. TRAMADOL. [Concomitant]
     Active Substance: TRAMADOL
     Route: 065

REACTIONS (24)
  - Haemorrhage [Not Recovered/Not Resolved]
  - Blood pressure fluctuation [Recovered/Resolved]
  - Faecal calprotectin increased [Not Recovered/Not Resolved]
  - Therapeutic product effect incomplete [Not Recovered/Not Resolved]
  - Arthralgia [Recovered/Resolved]
  - Fatigue [Unknown]
  - Eye swelling [Recovered/Resolved]
  - Drug level above therapeutic [Unknown]
  - Drug hypersensitivity [Recovered/Resolved]
  - Urticaria [Recovered/Resolved]
  - Incorrect dose administered [Unknown]
  - Condition aggravated [Recovered/Resolved]
  - Cytomegalovirus test positive [Recovered/Resolved]
  - Headache [Not Recovered/Not Resolved]
  - Drug level decreased [Recovered/Resolved]
  - Drug ineffective [Not Recovered/Not Resolved]
  - Pruritus [Recovered/Resolved]
  - Product use issue [Unknown]
  - Inappropriate schedule of product administration [Recovered/Resolved]
  - Intentional product use issue [Unknown]
  - Off label use [Not Recovered/Not Resolved]
  - Drug specific antibody present [Recovered/Resolved]
  - Diarrhoea [Not Recovered/Not Resolved]
  - Herpes simplex test positive [Recovered/Resolved]
